FAERS Safety Report 22260005 (Version 1)
Quarter: 2023Q2

REPORT INFORMATION
  Report Type: Spontaneous
  Country: IT (occurrence: IT)
  Receive Date: 20230427
  Receipt Date: 20230427
  Transmission Date: 20230722
  Serious: Yes (Hospitalization, Other)
  Sender: FDA-Public Use
  Company Number: IT-ELI_LILLY_AND_COMPANY-IT202304009335

PATIENT
  Age: 78 Year
  Sex: Female

DRUGS (8)
  1. TERIPARATIDE [Suspect]
     Active Substance: TERIPARATIDE
     Indication: Hormone therapy
     Dosage: 20 UG, DAILY
     Route: 065
  2. CHOLECALCIFEROL [Suspect]
     Active Substance: CHOLECALCIFEROL
     Indication: Product used for unknown indication
     Dosage: 50000 U, MONTHLY (1/M)
     Route: 048
  3. CALCIUM CARBONATE [Suspect]
     Active Substance: CALCIUM CARBONATE
     Indication: Product used for unknown indication
     Dosage: 1 G, DAILY
     Route: 048
  4. RISEDRONATE SODIUM [Suspect]
     Active Substance: RISEDRONATE SODIUM
     Indication: Thyroid cancer
     Dosage: 35 MG, WEEKLY (1/W)
     Route: 065
  5. CALCIUM [Suspect]
     Active Substance: CALCIUM
     Indication: Thyroid cancer
     Dosage: UNK, UNKNOWN
     Route: 065
  6. CHOLECALCIFEROL [Suspect]
     Active Substance: CHOLECALCIFEROL
     Indication: Thyroid cancer
     Dosage: 50000 DOSAGE FORM, MONTHLY (1/M)
     Route: 048
  7. RAMIPRIL [Concomitant]
     Active Substance: RAMIPRIL
     Indication: Hypertension
     Dosage: 5 MG, DAILY
  8. RISEDRONATE SODIUM [Concomitant]
     Active Substance: RISEDRONATE SODIUM
     Indication: Product used for unknown indication
     Dosage: 35 MG, WEEKLY (1/W)

REACTIONS (9)
  - Skin ulcer [Recovering/Resolving]
  - Calciphylaxis [Recovering/Resolving]
  - Arterial thrombosis [Recovering/Resolving]
  - Hyperparathyroidism secondary [Unknown]
  - Metaplasia [Recovering/Resolving]
  - Pain [Recovered/Resolved]
  - Hypercalcaemia [Recovering/Resolving]
  - Intentional product use issue [Unknown]
  - Off label use [Unknown]
